FAERS Safety Report 8524965-1 (Version None)
Quarter: 2012Q3

REPORT INFORMATION
  Report Type: 
  Country: None (occurrence: None)
  Receive Date: 20120720
  Receipt Date: 20120706
  Transmission Date: 20120928
  Serious: Yes (Hospitalization)
  Sender: FDA-Public Use
  Company Number: KR-MYLANLABS-2012S1013901

PATIENT
  Age: 40 Year
  Sex: Female

DRUGS (3)
  1. HYDROXYCHLOROQUINE SULFATE [Concomitant]
     Indication: OVERLAP SYNDROME
     Route: 065
  2. AZATHIOPRINE [Suspect]
     Indication: OVERLAP SYNDROME
     Route: 065
  3. PREDNISOLONE [Suspect]
     Indication: OVERLAP SYNDROME
     Dosage: 10MG
     Route: 065

REACTIONS (1)
  - NECROTISING FASCIITIS [None]
